FAERS Safety Report 13876500 (Version 1)
Quarter: 2017Q3

REPORT INFORMATION
  Report Type: Spontaneous
  Country: US (occurrence: None)
  Receive Date: 20170814
  Receipt Date: 20170814
  Transmission Date: 20171127
  Serious: Yes (Other)
  Sender: FDA-Public Use
  Company Number: None

PATIENT
  Age: 60 Year
  Sex: Female

DRUGS (1)
  1. HUMIRA [Suspect]
     Active Substance: ADALIMUMAB
     Indication: RHEUMATOID ARTHRITIS
     Dosage: 40 MG EVERY OTHER WEEK SUBQ
     Route: 058
     Dates: start: 20170510, end: 20170730

REACTIONS (2)
  - Myalgia [None]
  - Palpitations [None]

NARRATIVE: CASE EVENT DATE: 20170714
